FAERS Safety Report 5463488-3 (Version None)
Quarter: 2007Q3

REPORT INFORMATION
  Report Type: 
  Country: None (occurrence: None)
  Receive Date: 20070920
  Receipt Date: 20070910
  Transmission Date: 20080115
  Serious: Yes (Other)
  Sender: FDA-Public Use
  Company Number: GR-PFIZER INC-2007075522

PATIENT
  Sex: Female

DRUGS (4)
  1. ZITHROMAX [Suspect]
     Indication: PYREXIA
     Route: 065
     Dates: start: 20070824, end: 20070826
  2. PROCEF [Concomitant]
  3. DEPON [Concomitant]
  4. PONSTAN [Concomitant]

REACTIONS (1)
  - INFECTIOUS MONONUCLEOSIS [None]
